FAERS Safety Report 6235752-1 (Version None)
Quarter: 2009Q2

REPORT INFORMATION
  Report Type: 
  Country: None (occurrence: None)
  Receive Date: 20090617
  Receipt Date: 20090602
  Transmission Date: 20091009
  Serious: Yes (Other)
  Sender: FDA-Public Use
  Company Number: PHHY2009US21587

PATIENT
  Age: 61 Year
  Sex: Male

DRUGS (3)
  1. VISUDYNE [Suspect]
     Indication: MACULAR DEGENERATION
  2. BEVACIZUMAB [Suspect]
     Indication: RETINAL HAEMORRHAGE
  3. TRIAMCINOLONE [Concomitant]

REACTIONS (4)
  - DETACHMENT OF RETINAL PIGMENT EPITHELIUM [None]
  - POLYPOIDAL CHOROIDAL VASCULOPATHY [None]
  - RETINAL DEPOSITS [None]
  - RETINAL HAEMORRHAGE [None]
